FAERS Safety Report 17273889 (Version 1)
Quarter: 2020Q1

REPORT INFORMATION
  Report Type: Spontaneous
  Country: US (occurrence: US)
  Receive Date: 20191225
  Receipt Date: 20191225
  Transmission Date: 20200409
  Serious: Yes (Hospitalization)
  Sender: FDA-Public Use
  Company Number: None

PATIENT
  Age: 64 Year
  Sex: Female
  Weight: 49.4 kg

DRUGS (4)
  1. CYCLOPHOSPHAMIDE. [Suspect]
     Active Substance: CYCLOPHOSPHAMIDE
     Dates: end: 20191205
  2. MERCAPTOPURINE. [Suspect]
     Active Substance: MERCAPTOPURINE
     Dates: end: 20191208
  3. METHOTREXATE. [Suspect]
     Active Substance: METHOTREXATE
     Dates: end: 20191121
  4. CYTARABINE. [Suspect]
     Active Substance: CYTARABINE
     Dates: end: 20191208

REACTIONS (5)
  - Intervertebral disc degeneration [None]
  - Back pain [None]
  - Pain [None]
  - Arthropathy [None]
  - Therapeutic product effect incomplete [None]

NARRATIVE: CASE EVENT DATE: 20191209
